FAERS Safety Report 16671794 (Version 3)
Quarter: 2019Q3

REPORT INFORMATION
  Report Type: Report from Study
  Country: US (occurrence: US)
  Receive Date: 20190806
  Receipt Date: 20190920
  Transmission Date: 20191004
  Serious: Yes (Hospitalization, Other)
  Sender: FDA-Public Use
  Company Number: PHEH2019US032441

PATIENT
  Sex: Male

DRUGS (1)
  1. COSENTYX [Suspect]
     Active Substance: SECUKINUMAB
     Indication: PSORIASIS
     Dosage: 300 MG, QMO
     Route: 065
     Dates: start: 2019

REACTIONS (8)
  - Pyomyositis [Unknown]
  - Fatigue [Unknown]
  - Night sweats [Unknown]
  - Staphylococcal infection [Recovered/Resolved]
  - Gait disturbance [Unknown]
  - Psoas abscess [Unknown]
  - Staphylococcal bacteraemia [Unknown]
  - Back pain [Not Recovered/Not Resolved]
